FAERS Safety Report 15902086 (Version 1)
Quarter: 2019Q1

REPORT INFORMATION
  Report Type: Spontaneous
  Country: US (occurrence: US)
  Receive Date: 20190201
  Receipt Date: 20190201
  Transmission Date: 20190417
  Serious: No
  Sender: FDA-Public Use
  Company Number: US-GILEAD-2018-0368091

PATIENT
  Age: 58 Year
  Sex: Male

DRUGS (2)
  1. LASIX [Concomitant]
     Active Substance: FUROSEMIDE
  2. EPCLUSA [Suspect]
     Active Substance: SOFOSBUVIR\VELPATASVIR
     Indication: CHRONIC HEPATITIS C
     Dosage: 1 DF, UNK
     Route: 048
     Dates: start: 20180929, end: 201812

REACTIONS (1)
  - Intentional dose omission [Unknown]
